FAERS Safety Report 6169549-8 (Version None)
Quarter: 2009Q2

REPORT INFORMATION
  Report Type: 
  Country: None (occurrence: None)
  Receive Date: 20090428
  Receipt Date: 20090416
  Transmission Date: 20091009
  Serious: Yes (Other)
  Sender: FDA-Public Use
  Company Number: US-WYE-H08283709

PATIENT
  Sex: Female
  Weight: 97.61 kg

DRUGS (5)
  1. PRISTIQ [Suspect]
     Indication: MAJOR DEPRESSION
     Route: 048
     Dates: start: 20090129, end: 20090211
  2. PRISTIQ [Suspect]
     Dates: start: 20090212, end: 20090215
  3. PRISTIQ [Suspect]
     Route: 048
     Dates: start: 20090216
  4. KLONOPIN [Concomitant]
     Indication: MYOCLONUS
     Dosage: 0.5 MG UNKNOWN FREQUENCY
  5. KEPPRA [Concomitant]
     Indication: CONVULSION

REACTIONS (3)
  - ANGER [None]
  - EMOTIONAL DISORDER [None]
  - IRRITABILITY [None]
